FAERS Safety Report 18770435 (Version 1)
Quarter: 2021Q1

REPORT INFORMATION
  Report Type: Report from Study
  Country: None (occurrence: US)
  Receive Date: 20210122
  Receipt Date: 20210122
  Transmission Date: 20210419
  Serious: Yes (Other)
  Sender: FDA-Public Use
  Company Number: US-ABBVIE-20K-163-3695624-00

PATIENT
  Sex: Female
  Weight: 85.81 kg

DRUGS (2)
  1. HUMIRA [Suspect]
     Active Substance: ADALIMUMAB
     Dosage: CITRATE FREE
     Route: 058
     Dates: start: 20201225
  2. HUMIRA [Suspect]
     Active Substance: ADALIMUMAB
     Indication: RHEUMATOID ARTHRITIS
     Dosage: CITRATE FREE
     Route: 058
     Dates: end: 20201127

REACTIONS (4)
  - Fall [Recovering/Resolving]
  - Arthralgia [Recovering/Resolving]
  - Osteoarthritis [Recovering/Resolving]
  - Accident [Recovering/Resolving]
